FAERS Safety Report 20024966 (Version 3)
Quarter: 2022Q3

REPORT INFORMATION
  Report Type: Report from Study
  Country: US (occurrence: US)
  Receive Date: 20211102
  Receipt Date: 20220720
  Transmission Date: 20221027
  Serious: Yes (Other)
  Sender: FDA-Public Use
  Company Number: US-JAZZ-2021-US-019220

PATIENT
  Age: 46 Year
  Sex: Female

DRUGS (10)
  1. XYREM [Suspect]
     Active Substance: SODIUM OXYBATE
     Indication: Narcolepsy
     Dosage: 2.25 GRAM, BID
     Route: 048
     Dates: start: 201602, end: 201602
  2. XYREM [Suspect]
     Active Substance: SODIUM OXYBATE
     Indication: Cataplexy
     Dosage: DOSE ADJUSTMENTS
     Route: 048
     Dates: start: 201602, end: 201707
  3. XYREM [Suspect]
     Active Substance: SODIUM OXYBATE
     Indication: Somnolence
     Dosage: 4.5 GRAM, BID
     Route: 048
     Dates: start: 201707
  4. XYREM [Suspect]
     Active Substance: SODIUM OXYBATE
     Dosage: 4.5G TWICE NIGHTLY
  5. XYREM [Suspect]
     Active Substance: SODIUM OXYBATE
     Dosage: 9 GRAM, QD
     Dates: start: 20160128, end: 20180110
  6. NUVIGIL [Concomitant]
     Active Substance: ARMODAFINIL
     Indication: Product used for unknown indication
     Dosage: 50 MG TABLET
     Dates: start: 20160809
  7. LEVOTHYROXINE [Concomitant]
     Active Substance: LEVOTHYROXINE
     Indication: Product used for unknown indication
     Dosage: 125 MCG TABLET
     Dates: start: 20200111
  8. FUROSEMIDE [Concomitant]
     Active Substance: FUROSEMIDE
     Indication: Product used for unknown indication
     Dosage: 0000
     Dates: start: 20210918
  9. CALCIUM CARBONATE [Concomitant]
     Active Substance: CALCIUM CARBONATE
     Indication: Product used for unknown indication
     Dosage: 500 MG TAB CHEW
  10. FERROUS SULFATE [Concomitant]
     Active Substance: FERROUS SULFATE
     Indication: Product used for unknown indication
     Dosage: UNK
     Dates: start: 20211018

REACTIONS (23)
  - Renal impairment [Recovering/Resolving]
  - Syncope [Unknown]
  - Restless legs syndrome [Unknown]
  - Periodic limb movement disorder [Not Recovered/Not Resolved]
  - Eye pain [Unknown]
  - Visual impairment [Unknown]
  - Pyrexia [Unknown]
  - Iron deficiency [Recovering/Resolving]
  - Cough [Not Recovered/Not Resolved]
  - Chest discomfort [Unknown]
  - Palpitations [Not Recovered/Not Resolved]
  - Chest pain [Unknown]
  - Dyspnoea [Unknown]
  - Abdominal pain [Unknown]
  - Hypoaesthesia [Unknown]
  - Rapid eye movement sleep behaviour disorder [Not Recovered/Not Resolved]
  - Fluid retention [Not Recovered/Not Resolved]
  - Dizziness [Unknown]
  - Headache [Unknown]
  - Nocturia [Unknown]
  - Peripheral swelling [Not Recovered/Not Resolved]
  - Essential hypertension [Unknown]
  - Arthralgia [Unknown]

NARRATIVE: CASE EVENT DATE: 20211110
